FAERS Safety Report 8566745-7 (Version None)
Quarter: 2012Q3

REPORT INFORMATION
  Report Type: 
  Country: None (occurrence: None)
  Receive Date: 20120803
  Receipt Date: 20120106
  Transmission Date: 20120928
  Serious: No
  Sender: FDA-Public Use
  Company Number: US-ABBOTT-12P-163-0890077-00

PATIENT
  Sex: Female
  Weight: 90.8 kg

DRUGS (2)
  1. HIGH BLOOD PRESSURE MEDICATION [Concomitant]
     Indication: PRODUCT USED FOR UNKNOWN INDICATION
  2. NIASPAN [Suspect]
     Indication: BLOOD CHOLESTEROL INCREASED
     Dosage: AT BEDTIME
     Dates: start: 20111230, end: 20120102

REACTIONS (3)
  - NAUSEA [None]
  - HEADACHE [None]
  - DIARRHOEA [None]
